FAERS Safety Report 17751224 (Version 6)
Quarter: 2021Q2

REPORT INFORMATION
  Report Type: Report from Study
  Country: CR (occurrence: CR)
  Receive Date: 20200506
  Receipt Date: 20210506
  Transmission Date: 20210716
  Serious: Yes (Other)
  Sender: FDA-Public Use
  Company Number: PHHY2019CR138636

PATIENT
  Sex: Female
  Weight: 85 kg

DRUGS (5)
  1. GILENYA [Suspect]
     Active Substance: FINGOLIMOD HYDROCHLORIDE
     Indication: RELAPSING-REMITTING MULTIPLE SCLEROSIS
     Dosage: 0.5 MG
     Route: 048
  2. CONJUGATED ESTROGENS [Concomitant]
     Active Substance: ESTROGENS, CONJUGATED
     Indication: PRODUCT USED FOR UNKNOWN INDICATION
     Dosage: 0.625 G
     Route: 065
  3. GILENYA [Suspect]
     Active Substance: FINGOLIMOD HYDROCHLORIDE
     Indication: MULTIPLE SCLEROSIS
     Dosage: 0.5 MG, QD
     Route: 048
     Dates: start: 20180531
  4. GILENYA [Suspect]
     Active Substance: FINGOLIMOD HYDROCHLORIDE
     Dosage: UNK (STARTED 2 YEARS AGO)
     Route: 065
  5. GILENYA [Suspect]
     Active Substance: FINGOLIMOD HYDROCHLORIDE
     Dosage: 1 DF, QD
     Route: 065

REACTIONS (22)
  - Diplegia [Unknown]
  - Mobility decreased [Unknown]
  - Thyroid cancer [Unknown]
  - Anxiety [Unknown]
  - Hypertension [Unknown]
  - Memory impairment [Unknown]
  - Peroneal nerve palsy [Unknown]
  - Lymphadenopathy [Unknown]
  - Multiple sclerosis relapse [Unknown]
  - Arthralgia [Unknown]
  - Asthenia [Unknown]
  - Pigmentation disorder [Unknown]
  - Back pain [Unknown]
  - Muscular weakness [Unknown]
  - Drug ineffective [Unknown]
  - Pain in extremity [Unknown]
  - Oropharyngeal discomfort [Unknown]
  - Hypoaesthesia [Unknown]
  - Fatigue [Unknown]
  - Fall [Unknown]
  - Gait disturbance [Unknown]
  - Muscle spasms [Unknown]
